FAERS Safety Report 21072530 (Version 1)
Quarter: 2022Q3

REPORT INFORMATION
  Report Type: Spontaneous
  Country: US (occurrence: None)
  Receive Date: 20220712
  Receipt Date: 20220712
  Transmission Date: 20221027
  Serious: Yes (Death)
  Sender: FDA-Public Use
  Company Number: None

PATIENT
  Age: 66 Year
  Sex: Female
  Weight: 69.9 kg

DRUGS (7)
  1. CAPECITABINE [Suspect]
     Active Substance: CAPECITABINE
     Dosage: FREQUENCY : TWICE A DAY;?
     Route: 048
     Dates: start: 202109
  2. BIOTIN [Concomitant]
     Active Substance: BIOTIN
  3. CARAFATE [Concomitant]
     Active Substance: SUCRALFATE
  4. PAXIL [Concomitant]
     Active Substance: PAROXETINE HYDROCHLORIDE
  5. PEPCID [Concomitant]
     Active Substance: FAMOTIDINE
  6. PEPTO-BISMOL [Suspect]
     Active Substance: BISMUTH SUBSALICYLATE
  7. TUMS [Concomitant]
     Active Substance: CALCIUM CARBONATE

REACTIONS (1)
  - Death [None]
